FAERS Safety Report 13774953 (Version 1)
Quarter: 2017Q3

REPORT INFORMATION
  Report Type: Spontaneous
  Country: US (occurrence: US)
  Receive Date: 20170720
  Receipt Date: 20170720
  Transmission Date: 20171127
  Serious: No
  Sender: FDA-Public Use
  Company Number: None

PATIENT
  Age: 33 Year
  Sex: Female

DRUGS (1)
  1. REMICADE [Suspect]
     Active Substance: INFLIXIMAB
     Indication: CROHN^S DISEASE
     Dosage: 500MG Q6W IV
     Route: 042
     Dates: start: 20170301, end: 20170717

REACTIONS (4)
  - Infusion related reaction [None]
  - Therapy cessation [None]
  - Lip swelling [None]
  - Dyspnoea [None]

NARRATIVE: CASE EVENT DATE: 20170717
